FAERS Safety Report 9234731 (Version 2)
Quarter: 2013Q2

REPORT INFORMATION
  Report Type: Spontaneous
  Country: US (occurrence: US)
  Receive Date: 20130416
  Receipt Date: 20130611
  Transmission Date: 20140414
  Serious: No
  Sender: FDA-Public Use
  Company Number: US-PFIZER INC-2013114670

PATIENT
  Age: 72 Year
  Sex: Male

DRUGS (2)
  1. INLYTA [Suspect]
     Indication: RENAL CANCER
     Dosage: 1 MG, 4 TABLETS TWICE DAILY
     Dates: start: 20130204
  2. INLYTA [Suspect]
     Indication: METASTASES TO LUNG
     Dosage: 4 MG, UNK

REACTIONS (5)
  - Fatigue [Unknown]
  - Rash [Unknown]
  - Oropharyngeal pain [Unknown]
  - Prostatic pain [Unknown]
  - Hypertension [Unknown]
